FAERS Safety Report 23469419 (Version 1)
Quarter: 2024Q1

REPORT INFORMATION
  Report Type: Spontaneous
  Country: FR (occurrence: FR)
  Receive Date: 20240202
  Receipt Date: 20240202
  Transmission Date: 20240410
  Serious: Yes (Congenital Anomaly)
  Sender: FDA-Public Use
  Company Number: None

PATIENT
  Sex: Male

DRUGS (1)
  1. METHOTREXATE [Suspect]
     Active Substance: METHOTREXATE
     Indication: Ectopic pregnancy
     Route: 064
     Dates: start: 20221229

REACTIONS (1)
  - Ventricular septal defect [Not Recovered/Not Resolved]

NARRATIVE: CASE EVENT DATE: 20230905
